FAERS Safety Report 16079931 (Version 9)
Quarter: 2022Q3

REPORT INFORMATION
  Report Type: Spontaneous
  Country: CA (occurrence: CA)
  Receive Date: 20190315
  Receipt Date: 20220919
  Transmission Date: 20221026
  Serious: Yes (Other)
  Sender: FDA-Public Use
  Company Number: CA-SAMSUNG BIOEPIS-SB-2019-06016

PATIENT
  Age: 53 Year
  Sex: Male
  Weight: 67 kg

DRUGS (333)
  1. INFLIXIMAB [Suspect]
     Active Substance: INFLIXIMAB
     Indication: Colitis ulcerative
     Dosage: UNKNOWN
     Route: 042
  2. INFLIXIMAB [Suspect]
     Active Substance: INFLIXIMAB
     Indication: Crohn^s disease
     Dosage: UNKNOWN, FREQUENCY: CYCLICAL
     Route: 042
  3. INFLIXIMAB [Suspect]
     Active Substance: INFLIXIMAB
     Dosage: DOSE: 731 UNIT UNKNOWN
     Route: 065
  4. INFLIXIMAB [Suspect]
     Active Substance: INFLIXIMAB
     Dosage: UNKNOWN
     Route: 042
  5. INFLIXIMAB [Suspect]
     Active Substance: INFLIXIMAB
     Dosage: UNKNOWN,Q2WK
     Route: 042
  6. INFLIXIMAB [Suspect]
     Active Substance: INFLIXIMAB
     Route: 042
     Dates: start: 20170101, end: 20170901
  7. INFLIXIMAB [Suspect]
     Active Substance: INFLIXIMAB
     Dosage: UNKNOWN,Q6WK
     Route: 042
     Dates: start: 201709
  8. INFLIXIMAB [Suspect]
     Active Substance: INFLIXIMAB
     Dosage: UNKNOWN,Q6 WEEKS
     Route: 042
     Dates: start: 20171019
  9. INFLIXIMAB [Suspect]
     Active Substance: INFLIXIMAB
     Route: 042
     Dates: start: 20171019
  10. INFLIXIMAB [Suspect]
     Active Substance: INFLIXIMAB
     Route: 042
  11. INFLIXIMAB [Suspect]
     Active Substance: INFLIXIMAB
     Dosage: UNKNOWN (AT WEEK ZERO)
     Route: 042
     Dates: start: 201709
  12. INFLIXIMAB [Suspect]
     Active Substance: INFLIXIMAB
     Dosage: UNKNOWN (AT WEEK TWO)
     Route: 042
  13. INFLIXIMAB [Suspect]
     Active Substance: INFLIXIMAB
     Dosage: UNKNOWN (AT WEEK SIX)
     Route: 042
  14. INFLIXIMAB [Suspect]
     Active Substance: INFLIXIMAB
     Dosage: UNKNOWN (THEN EVERY 8 WEEKS)
     Route: 042
  15. INFLIXIMAB [Suspect]
     Active Substance: INFLIXIMAB
     Dosage: UNKNOWN
     Route: 065
  16. INFLIXIMAB [Suspect]
     Active Substance: INFLIXIMAB
     Dosage: UNKNOWN
     Route: 042
  17. INFLIXIMAB [Suspect]
     Active Substance: INFLIXIMAB
     Dosage: UNKNOWN
     Route: 042
  18. INFLIXIMAB [Suspect]
     Active Substance: INFLIXIMAB
     Dosage: UNKNOWN
     Route: 065
  19. INFLIXIMAB [Suspect]
     Active Substance: INFLIXIMAB
     Dosage: UNKNOWN
     Route: 042
  20. INFLIXIMAB [Suspect]
     Active Substance: INFLIXIMAB
     Route: 042
  21. INFLIXIMAB [Suspect]
     Active Substance: INFLIXIMAB
     Dosage: UNKNOWN
     Route: 042
  22. INFLIXIMAB [Suspect]
     Active Substance: INFLIXIMAB
     Dosage: UNKNOWN
     Route: 042
  23. INFLIXIMAB [Suspect]
     Active Substance: INFLIXIMAB
     Route: 042
  24. INFLIXIMAB [Suspect]
     Active Substance: INFLIXIMAB
     Route: 042
  25. INFLIXIMAB [Suspect]
     Active Substance: INFLIXIMAB
     Route: 042
  26. INFLIXIMAB [Suspect]
     Active Substance: INFLIXIMAB
     Route: 042
  27. INFLIXIMAB [Suspect]
     Active Substance: INFLIXIMAB
     Route: 042
  28. INFLIXIMAB [Suspect]
     Active Substance: INFLIXIMAB
     Dosage: UNKNOWN
     Route: 042
  29. ADALIMUMAB [Suspect]
     Active Substance: ADALIMUMAB
     Indication: Crohn^s disease
     Dosage: 8 DOSAGE FORM
     Route: 048
     Dates: start: 201707
  30. ADALIMUMAB [Suspect]
     Active Substance: ADALIMUMAB
     Dosage: UNKNOWN, SOLUTION SUBCUTANEOUS
     Route: 065
  31. ASACOL [Suspect]
     Active Substance: MESALAMINE
     Indication: Colitis ulcerative
     Dosage: ENTERIC COATED
     Route: 065
  32. ASACOL [Suspect]
     Active Substance: MESALAMINE
     Route: 065
  33. ASACOL [Suspect]
     Active Substance: MESALAMINE
     Route: 065
  34. ASACOL [Suspect]
     Active Substance: MESALAMINE
     Route: 065
  35. ASACOL [Suspect]
     Active Substance: MESALAMINE
     Dosage: TABLET (ENTERIC-COATED)
     Route: 065
  36. ASACOL [Suspect]
     Active Substance: MESALAMINE
     Dosage: ENTERIC COATED
     Route: 065
  37. ASACOL [Suspect]
     Active Substance: MESALAMINE
     Dosage: ENTERIC COATED
     Route: 065
  38. ASACOL [Suspect]
     Active Substance: MESALAMINE
     Route: 065
     Dates: start: 20161001
  39. ASACOL [Suspect]
     Active Substance: MESALAMINE
     Dosage: ENTERIC COATED TABLET (3 TABLETS TWO TIMES A DAY (4.8 G DAILY))
     Route: 065
     Dates: start: 20161001
  40. ASACOL [Suspect]
     Active Substance: MESALAMINE
     Dosage: Q12H
     Route: 065
     Dates: start: 20161001
  41. ASACOL [Suspect]
     Active Substance: MESALAMINE
     Dosage: GASTRO RESISTANT TABLET (3 TABLETS TWO TIMES A DAY)
     Route: 065
     Dates: start: 20161001
  42. ASACOL [Suspect]
     Active Substance: MESALAMINE
     Route: 065
     Dates: start: 20161001
  43. ASACOL [Suspect]
     Active Substance: MESALAMINE
     Dosage: 8 DOSAGE FORM, QD
     Route: 065
     Dates: start: 201707
  44. ASACOL [Suspect]
     Active Substance: MESALAMINE
     Dosage: 3 DOSAGE FORM, BID (3 TABLETS TWO TIMES A DAY),6 DOSAGE FORM, QD
     Route: 065
     Dates: start: 20161001
  45. ASACOL [Suspect]
     Active Substance: MESALAMINE
     Dosage: ENTERIC-COATED TABLET
     Route: 065
  46. ASACOL [Suspect]
     Active Substance: MESALAMINE
     Dosage: ENTERIC-COATED TABLET
     Route: 065
  47. ASACOL [Suspect]
     Active Substance: MESALAMINE
     Dosage: ENTERIC-COATED
     Route: 065
  48. ASACOL [Suspect]
     Active Substance: MESALAMINE
     Dosage: TABLET (ENTERIC-COATED)
     Route: 065
  49. ASACOL [Suspect]
     Active Substance: MESALAMINE
     Dosage: 3 DOSAGE FORM, BID (3 TABLETS TWO TIMES A DAY)
     Route: 065
     Dates: start: 20161001
  50. ASACOL [Suspect]
     Active Substance: MESALAMINE
     Dosage: TABLET (ENTERIC COATED), THRICE EVERY FIVE DAYS
     Route: 065
  51. ASACOL [Suspect]
     Active Substance: MESALAMINE
     Route: 065
  52. ASACOL [Suspect]
     Active Substance: MESALAMINE
     Route: 065
  53. ASACOL [Suspect]
     Active Substance: MESALAMINE
     Route: 065
  54. ASACOL [Suspect]
     Active Substance: MESALAMINE
     Route: 065
  55. ASACOL [Suspect]
     Active Substance: MESALAMINE
     Route: 065
  56. ASACOL [Suspect]
     Active Substance: MESALAMINE
     Route: 065
  57. ASACOL [Suspect]
     Active Substance: MESALAMINE
     Route: 065
  58. ASACOL [Suspect]
     Active Substance: MESALAMINE
     Route: 065
  59. ASACOL [Suspect]
     Active Substance: MESALAMINE
     Route: 065
  60. ASACOL [Suspect]
     Active Substance: MESALAMINE
     Route: 065
  61. ASACOL [Suspect]
     Active Substance: MESALAMINE
     Route: 065
  62. ASACOL [Suspect]
     Active Substance: MESALAMINE
     Route: 065
  63. ASACOL [Suspect]
     Active Substance: MESALAMINE
     Route: 065
  64. ASACOL [Suspect]
     Active Substance: MESALAMINE
     Dosage: TABLET (ENTERIC-COATED)
     Route: 065
  65. ASACOL [Suspect]
     Active Substance: MESALAMINE
     Dosage: UNKNOWN, TABLET (ENTERIC-COATED)
     Route: 065
  66. ASACOL [Suspect]
     Active Substance: MESALAMINE
     Dosage: TABLET (ENTERIC-COATED)
     Route: 065
  67. ASACOL [Suspect]
     Active Substance: MESALAMINE
     Dosage: TABLET (ENTERIC-COATED)
     Route: 065
  68. CORTIFOAM [Suspect]
     Active Substance: HYDROCORTISONE ACETATE
     Indication: Colitis ulcerative
     Dosage: UNKNOWN, AEROSOL, FOAM
     Route: 065
  69. CORTIFOAM [Suspect]
     Active Substance: HYDROCORTISONE ACETATE
     Dosage: UNKNOWN, AEROSOL, FOAM
     Route: 065
  70. CORTIFOAM [Suspect]
     Active Substance: HYDROCORTISONE ACETATE
     Dosage: UNKNOWN
     Route: 048
  71. CORTIFOAM [Suspect]
     Active Substance: HYDROCORTISONE ACETATE
     Route: 048
     Dates: start: 200707
  72. CORTIFOAM [Suspect]
     Active Substance: HYDROCORTISONE ACETATE
     Dosage: UNKNOWN (AEROSOL (SPRAY AND INHALATION))
     Route: 065
     Dates: start: 200707
  73. CORTIFOAM [Suspect]
     Active Substance: HYDROCORTISONE ACETATE
     Dosage: 1 DOSAGE FORM, QD
     Route: 048
     Dates: start: 200707
  74. CORTIFOAM [Suspect]
     Active Substance: HYDROCORTISONE ACETATE
     Dosage: UNKNOWN
     Route: 065
  75. CORTIFOAM [Suspect]
     Active Substance: HYDROCORTISONE ACETATE
     Route: 065
  76. CORTIFOAM [Suspect]
     Active Substance: HYDROCORTISONE ACETATE
     Route: 048
  77. CORTIFOAM [Suspect]
     Active Substance: HYDROCORTISONE ACETATE
     Route: 048
  78. CORTIFOAM [Suspect]
     Active Substance: HYDROCORTISONE ACETATE
     Dosage: AEROSOL, FOAM
     Route: 048
  79. ENTYVIO [Suspect]
     Active Substance: VEDOLIZUMAB
     Indication: Colitis ulcerative
     Dosage: UNKNOWN, POWDER FOR SOLUTION INTRAVENOUS, INFUSION
     Route: 065
  80. ENTYVIO [Suspect]
     Active Substance: VEDOLIZUMAB
     Indication: Deep vein thrombosis
     Dosage: UNKNOWN, POWDER FOR SOLUTION INTRAVENOUS INFUSION
     Route: 042
  81. ENTYVIO [Suspect]
     Active Substance: VEDOLIZUMAB
     Dosage: 365 UNKNOWN UNIT, POWDER FOR SOLUTION INTRAVENOUS INFUSION
     Route: 042
  82. ENTYVIO [Suspect]
     Active Substance: VEDOLIZUMAB
     Dosage: UNKNOWN
     Route: 042
  83. ENTYVIO [Suspect]
     Active Substance: VEDOLIZUMAB
     Dosage: UNKNOWN
     Route: 042
     Dates: start: 2017, end: 2017
  84. ENTYVIO [Suspect]
     Active Substance: VEDOLIZUMAB
     Dosage: 8 DOSAGE FORM, QD
     Route: 065
     Dates: start: 201807
  85. ENTYVIO [Suspect]
     Active Substance: VEDOLIZUMAB
     Dosage: UNKNOWN
     Route: 048
     Dates: start: 2017, end: 2017
  86. ENTYVIO [Suspect]
     Active Substance: VEDOLIZUMAB
     Dosage: UNKNOWN (FOR IV INFUSION)
     Route: 065
  87. ENTYVIO [Suspect]
     Active Substance: VEDOLIZUMAB
     Dosage: UNKNOWN (FOR IV INFUSION)
     Route: 042
  88. ENTYVIO [Suspect]
     Active Substance: VEDOLIZUMAB
     Dosage: UNKNOWN
     Route: 048
  89. ENTYVIO [Suspect]
     Active Substance: VEDOLIZUMAB
     Route: 042
  90. ENTYVIO [Suspect]
     Active Substance: VEDOLIZUMAB
     Route: 048
  91. ENTYVIO [Suspect]
     Active Substance: VEDOLIZUMAB
     Route: 065
  92. HYDROCORTISONE [Suspect]
     Active Substance: HYDROCORTISONE
     Indication: Colitis ulcerative
     Dosage: UNKNOWN
     Route: 048
  93. HYDROCORTISONE [Suspect]
     Active Substance: HYDROCORTISONE
     Route: 048
  94. HYDROCORTISONE [Suspect]
     Active Substance: HYDROCORTISONE
     Route: 065
  95. HYDROCORTISONE [Suspect]
     Active Substance: HYDROCORTISONE
     Dosage: 8 DOSAGE FORM, QD
     Route: 048
     Dates: start: 2018
  96. HYDROCORTISONE [Suspect]
     Active Substance: HYDROCORTISONE
     Dosage: 8 DOSAGE FORM,Q8WK
     Route: 048
     Dates: start: 2017
  97. HYDROCORTISONE [Suspect]
     Active Substance: HYDROCORTISONE
     Dosage: OCCLUSIVE DRESSING TECHNIQUE
     Route: 065
  98. HYDROCORTISONE [Suspect]
     Active Substance: HYDROCORTISONE
     Route: 048
  99. HYDROCORTISONE [Suspect]
     Active Substance: HYDROCORTISONE
     Route: 048
  100. HYDROCORTISONE [Suspect]
     Active Substance: HYDROCORTISONE
     Dosage: UNKNOWN
     Route: 061
  101. HYDROCORTISONE [Suspect]
     Active Substance: HYDROCORTISONE
     Route: 048
  102. PREDNISONE [Suspect]
     Active Substance: PREDNISONE
     Indication: Colitis ulcerative
     Route: 065
  103. PREDNISONE [Suspect]
     Active Substance: PREDNISONE
     Dosage: UNKNOWN
     Route: 065
  104. PREDNISONE [Suspect]
     Active Substance: PREDNISONE
     Dosage: UNKNOWN
     Route: 065
     Dates: start: 2017
  105. PREDNISONE [Suspect]
     Active Substance: PREDNISONE
     Dosage: UNKNOWN (TAPERED DOSE)
     Route: 065
     Dates: start: 2009, end: 2009
  106. PREDNISONE [Suspect]
     Active Substance: PREDNISONE
     Route: 065
  107. PREDNISONE [Suspect]
     Active Substance: PREDNISONE
     Route: 065
     Dates: start: 2009, end: 2009
  108. PREDNISONE [Suspect]
     Active Substance: PREDNISONE
     Dosage: UNKNOWN
     Route: 065
     Dates: start: 2017, end: 2017
  109. PREDNISONE [Suspect]
     Active Substance: PREDNISONE
     Route: 065
  110. PREDNISONE [Suspect]
     Active Substance: PREDNISONE
     Dosage: UNKNOWN
     Route: 065
  111. PREDNISONE [Suspect]
     Active Substance: PREDNISONE
     Route: 048
  112. WARFARIN [Suspect]
     Active Substance: WARFARIN
     Indication: Deep vein thrombosis
     Dosage: UNKNOWN
     Route: 065
  113. WARFARIN [Suspect]
     Active Substance: WARFARIN
     Dosage: 8 DOSAGE FORM, Q8WK
     Route: 065
     Dates: start: 201707
  114. WARFARIN [Suspect]
     Active Substance: WARFARIN
     Dosage: UNKNOWN
     Route: 065
     Dates: start: 2019
  115. WARFARIN [Suspect]
     Active Substance: WARFARIN
     Dosage: UNKNOWN
     Route: 065
     Dates: start: 2009
  116. WARFARIN [Suspect]
     Active Substance: WARFARIN
     Dosage: UNKNOWN (TAPERED DOSE)
     Route: 065
     Dates: start: 2019
  117. WARFARIN [Suspect]
     Active Substance: WARFARIN
     Dosage: UNKNOWN (TAPERED DOSE IN 2009 (EXACT DOSE UNKNOWN))
     Route: 065
     Dates: start: 2009
  118. MESALAMINE [Suspect]
     Active Substance: MESALAMINE
     Indication: Colitis ulcerative
     Dosage: UNKNOWN, DELAYED RELEASED
     Route: 065
  119. MESALAMINE [Suspect]
     Active Substance: MESALAMINE
     Dosage: UNKNOWN
     Route: 065
  120. MESALAMINE [Suspect]
     Active Substance: MESALAMINE
     Dosage: UNKNOWN
     Route: 065
  121. VEDOLIZUMAB [Suspect]
     Active Substance: VEDOLIZUMAB
     Indication: Colitis ulcerative
     Dosage: UNKNOWN
     Route: 042
  122. VEDOLIZUMAB [Suspect]
     Active Substance: VEDOLIZUMAB
     Indication: Deep vein thrombosis
     Dosage: UNKNOWN (POWDER FOR SOLUTION INTRAVENOUS)
     Route: 065
  123. VEDOLIZUMAB [Suspect]
     Active Substance: VEDOLIZUMAB
     Dosage: UNKNOWN
     Route: 048
     Dates: start: 2017, end: 2017
  124. VEDOLIZUMAB [Suspect]
     Active Substance: VEDOLIZUMAB
     Dosage: UNKNOWN
     Route: 065
  125. VEDOLIZUMAB [Suspect]
     Active Substance: VEDOLIZUMAB
     Dosage: UNKNOWN
     Route: 042
     Dates: start: 2017
  126. VEDOLIZUMAB [Suspect]
     Active Substance: VEDOLIZUMAB
     Route: 048
  127. VEDOLIZUMAB [Suspect]
     Active Substance: VEDOLIZUMAB
     Dosage: UNKNOWN
     Route: 065
     Dates: start: 2019
  128. VEDOLIZUMAB [Suspect]
     Active Substance: VEDOLIZUMAB
     Dosage: UNKNOWN
     Route: 042
  129. VEDOLIZUMAB [Suspect]
     Active Substance: VEDOLIZUMAB
     Dosage: UNKNOWN
     Route: 042
  130. VEDOLIZUMAB [Suspect]
     Active Substance: VEDOLIZUMAB
     Dosage: UNKNOWN (POWDER FOR SOLUTION INTRAVENOUS)
     Route: 042
  131. VEDOLIZUMAB [Suspect]
     Active Substance: VEDOLIZUMAB
     Dosage: UNKNOWN
     Route: 042
  132. VEDOLIZUMAB [Suspect]
     Active Substance: VEDOLIZUMAB
     Dosage: UNKNOWN, POWDER FOR SOLUTION FOR INFUSION
     Route: 048
  133. METHOTREXATE [Suspect]
     Active Substance: METHOTREXATE
     Indication: Colitis ulcerative
     Dosage: UNKNOWN
     Route: 065
  134. BUDESONIDE [Suspect]
     Active Substance: BUDESONIDE
     Indication: Colitis ulcerative
     Route: 048
  135. BUDESONIDE [Suspect]
     Active Substance: BUDESONIDE
     Dosage: UNKNOWN
     Route: 048
  136. BUDESONIDE [Suspect]
     Active Substance: BUDESONIDE
     Dosage: UNKNOWN
     Route: 048
  137. BUDESONIDE [Suspect]
     Active Substance: BUDESONIDE
     Dosage: UNKNOWN
     Route: 048
  138. BUDESONIDE [Suspect]
     Active Substance: BUDESONIDE
     Route: 048
  139. BUDESONIDE [Suspect]
     Active Substance: BUDESONIDE
     Dosage: 8 DOSAGE FORM, EVERY 8 WEEKS
     Route: 048
     Dates: start: 201707
  140. BUDESONIDE [Suspect]
     Active Substance: BUDESONIDE
     Dosage: 8 DOSAGE FORM, EVERY 8 WEEKS
     Route: 048
     Dates: start: 200707
  141. BUDESONIDE [Suspect]
     Active Substance: BUDESONIDE
     Dosage: PROLONGED RELEASE TABLET (TABLET EVERY 8 WEEKS)
     Route: 048
  142. BUDESONIDE [Suspect]
     Active Substance: BUDESONIDE
     Dosage: 1 DOSAGE FORM, QD
     Route: 048
     Dates: start: 201707
  143. BUDESONIDE [Suspect]
     Active Substance: BUDESONIDE
     Dosage: UNKNOWN PROLONGED RELEASE TABLET
     Route: 065
  144. BUDESONIDE [Suspect]
     Active Substance: BUDESONIDE
     Dosage: UNKNOWN
     Route: 048
  145. BUDESONIDE [Suspect]
     Active Substance: BUDESONIDE
     Route: 065
     Dates: start: 201707
  146. BUDESONIDE [Suspect]
     Active Substance: BUDESONIDE
     Dosage: PROLONGED RELEASE TABLET
     Route: 048
  147. BUDESONIDE [Suspect]
     Active Substance: BUDESONIDE
     Route: 048
  148. BUDESONIDE [Suspect]
     Active Substance: BUDESONIDE
     Route: 048
  149. BUDESONIDE [Suspect]
     Active Substance: BUDESONIDE
     Dosage: UNKNOWN
     Route: 048
  150. BUDESONIDE [Suspect]
     Active Substance: BUDESONIDE
     Route: 048
  151. BUDESONIDE [Suspect]
     Active Substance: BUDESONIDE
     Route: 048
  152. BUDESONIDE [Suspect]
     Active Substance: BUDESONIDE
     Route: 048
  153. BUDESONIDE [Suspect]
     Active Substance: BUDESONIDE
     Route: 048
  154. BUDESONIDE [Suspect]
     Active Substance: BUDESONIDE
     Dosage: CYCLICAL
     Route: 048
  155. BUDESONIDE [Suspect]
     Active Substance: BUDESONIDE
     Dosage: UNKNOWN
     Route: 048
  156. BUDESONIDE [Suspect]
     Active Substance: BUDESONIDE
     Route: 048
  157. BUDESONIDE [Suspect]
     Active Substance: BUDESONIDE
     Route: 048
  158. BUDESONIDE [Suspect]
     Active Substance: BUDESONIDE
     Route: 048
  159. HYDROCORTISONE [Suspect]
     Active Substance: HYDROCORTISONE
     Indication: Colitis ulcerative
     Route: 065
  160. HYDROCORTISONE [Suspect]
     Active Substance: HYDROCORTISONE
     Route: 065
  161. HYDROCORTISONE [Suspect]
     Active Substance: HYDROCORTISONE
     Route: 048
  162. HYDROCORTISONE [Suspect]
     Active Substance: HYDROCORTISONE
     Dosage: DELAYED AND EXTENDED RELEASE
     Route: 048
  163. HYDROCORTISONE [Suspect]
     Active Substance: HYDROCORTISONE
     Dosage: 1 DOSAGE FORM, QD
     Route: 048
     Dates: start: 20170701
  164. HYDROCORTISONE [Suspect]
     Active Substance: HYDROCORTISONE
     Dosage: 8 DOSAGE FORM, Q8WK
     Route: 048
     Dates: start: 201707
  165. HYDROCORTISONE [Suspect]
     Active Substance: HYDROCORTISONE
     Route: 048
     Dates: start: 20170701
  166. HYDROCORTISONE [Suspect]
     Active Substance: HYDROCORTISONE
     Dosage: UNKNOWN
     Route: 048
  167. HYDROCORTISONE [Suspect]
     Active Substance: HYDROCORTISONE
     Dosage: DELAYED AND EXTENDED RELEASE
     Route: 048
  168. HYDROCORTISONE [Suspect]
     Active Substance: HYDROCORTISONE
     Dosage: DELAYED AND EXTENDED RELEASE
     Route: 048
  169. HYDROCORTISONE ACETATE [Suspect]
     Active Substance: HYDROCORTISONE ACETATE
     Indication: Colitis ulcerative
     Dosage: UNKNOWN
     Route: 065
  170. HYDROCORTISONE ACETATE [Suspect]
     Active Substance: HYDROCORTISONE ACETATE
     Indication: Crohn^s disease
     Dosage: UNKNOWN
     Route: 065
  171. HYDROCORTISONE ACETATE [Suspect]
     Active Substance: HYDROCORTISONE ACETATE
     Route: 065
  172. HYDROCORTISONE ACETATE [Suspect]
     Active Substance: HYDROCORTISONE ACETATE
     Route: 048
  173. HYDROCORTISONE ACETATE [Suspect]
     Active Substance: HYDROCORTISONE ACETATE
     Dosage: 8 DOSAGE FORM, QD
     Route: 048
     Dates: start: 201807
  174. HYDROCORTISONE ACETATE [Suspect]
     Active Substance: HYDROCORTISONE ACETATE
     Dosage: UNKNOWN
     Route: 048
  175. HYDROCORTISONE ACETATE [Suspect]
     Active Substance: HYDROCORTISONE ACETATE
     Route: 048
     Dates: start: 2017
  176. HYDROCORTISONE ACETATE [Suspect]
     Active Substance: HYDROCORTISONE ACETATE
     Route: 048
     Dates: start: 201707
  177. HYDROCORTISONE ACETATE [Suspect]
     Active Substance: HYDROCORTISONE ACETATE
     Route: 048
     Dates: start: 201807
  178. HYDROCORTISONE ACETATE [Suspect]
     Active Substance: HYDROCORTISONE ACETATE
     Dosage: UNKNOWN
     Route: 042
  179. HYDROCORTISONE ACETATE [Suspect]
     Active Substance: HYDROCORTISONE ACETATE
     Route: 048
  180. HYDROCORTISONE ACETATE [Suspect]
     Active Substance: HYDROCORTISONE ACETATE
     Route: 048
  181. HYDROCORTISONE ACETATE [Suspect]
     Active Substance: HYDROCORTISONE ACETATE
     Dosage: UNKNOWN
     Route: 048
  182. HYDROCORTISONE ACETATE [Suspect]
     Active Substance: HYDROCORTISONE ACETATE
     Route: 048
  183. HYDROCORTISONE ACETATE [Suspect]
     Active Substance: HYDROCORTISONE ACETATE
     Dosage: UNKNOWN
     Route: 065
  184. HYDROCORTISONE ACETATE [Suspect]
     Active Substance: HYDROCORTISONE ACETATE
     Route: 048
  185. HYDROCORTISONE ACETATE [Suspect]
     Active Substance: HYDROCORTISONE ACETATE
     Dosage: UNKNOWN
     Route: 048
  186. HYDROCORTISONE ACETATE [Suspect]
     Active Substance: HYDROCORTISONE ACETATE
     Route: 048
  187. MESALAMINE [Suspect]
     Active Substance: MESALAMINE
     Indication: Colitis ulcerative
     Dosage: UNKNOWN
     Route: 065
  188. MESALAMINE [Suspect]
     Active Substance: MESALAMINE
     Route: 065
  189. MESALAMINE [Suspect]
     Active Substance: MESALAMINE
     Dosage: UNKNOWN
     Route: 065
  190. MESALAMINE [Suspect]
     Active Substance: MESALAMINE
     Dosage: UNKNOWN
     Route: 065
  191. MESALAMINE [Suspect]
     Active Substance: MESALAMINE
     Dosage: UNKNOWN
     Route: 065
  192. MESALAMINE [Suspect]
     Active Substance: MESALAMINE
     Dosage: UNKNOWN
     Route: 065
  193. MESALAMINE [Suspect]
     Active Substance: MESALAMINE
     Dosage: UNKNOWN
     Route: 065
     Dates: start: 2017, end: 201709
  194. MESALAMINE [Suspect]
     Active Substance: MESALAMINE
     Dosage: 0.8 GRAM THREE TABLETS TWO TIMES A DAY
     Route: 065
     Dates: start: 20161001
  195. MESALAMINE [Suspect]
     Active Substance: MESALAMINE
     Dosage: UNKNOWN
     Route: 065
     Dates: start: 2017, end: 201709
  196. MESALAMINE [Suspect]
     Active Substance: MESALAMINE
     Route: 048
     Dates: start: 20160101, end: 20161001
  197. MESALAMINE [Suspect]
     Active Substance: MESALAMINE
     Dosage: 0.8 G THREE TABLETS TWO TIMES A DAY (4.8 GRAM)
     Route: 065
     Dates: start: 20161001
  198. MESALAMINE [Suspect]
     Active Substance: MESALAMINE
     Route: 065
     Dates: start: 20161001
  199. MESALAMINE [Suspect]
     Active Substance: MESALAMINE
     Dosage: UNKNOWN
     Route: 065
     Dates: start: 20170101, end: 20210901
  200. MESALAMINE [Suspect]
     Active Substance: MESALAMINE
     Dosage: UNKNOWN
     Route: 065
     Dates: start: 201709, end: 201709
  201. MESALAMINE [Suspect]
     Active Substance: MESALAMINE
     Dosage: UNKNOWN
     Route: 065
     Dates: start: 202109, end: 202109
  202. MESALAMINE [Suspect]
     Active Substance: MESALAMINE
     Dosage: UNKNOWN
     Route: 065
     Dates: start: 20170101, end: 20170901
  203. MESALAMINE [Suspect]
     Active Substance: MESALAMINE
     Dosage: 50 UNKNOWN UNIT
     Route: 065
     Dates: start: 2009
  204. MESALAMINE [Suspect]
     Active Substance: MESALAMINE
     Route: 065
     Dates: start: 201707
  205. MESALAMINE [Suspect]
     Active Substance: MESALAMINE
     Route: 065
     Dates: start: 20170101
  206. MESALAMINE [Suspect]
     Active Substance: MESALAMINE
     Route: 065
     Dates: start: 201709, end: 2017
  207. MESALAMINE [Suspect]
     Active Substance: MESALAMINE
     Dosage: UNKNOWN
     Route: 065
     Dates: start: 2017
  208. MESALAMINE [Suspect]
     Active Substance: MESALAMINE
     Route: 048
  209. MESALAMINE [Suspect]
     Active Substance: MESALAMINE
     Dosage: THREE DOSAGE FORM, BID
     Route: 065
     Dates: start: 201610
  210. MESALAMINE [Suspect]
     Active Substance: MESALAMINE
     Dosage: UNKNOWN
     Route: 065
     Dates: start: 20170101, end: 20170901
  211. MESALAMINE [Suspect]
     Active Substance: MESALAMINE
     Route: 065
     Dates: start: 20160101, end: 20161001
  212. MESALAMINE [Suspect]
     Active Substance: MESALAMINE
     Route: 048
     Dates: start: 20170101, end: 20170901
  213. MESALAMINE [Suspect]
     Active Substance: MESALAMINE
     Dosage: UNKNOWN
     Route: 065
     Dates: start: 201601, end: 201610
  214. MESALAMINE [Suspect]
     Active Substance: MESALAMINE
     Dosage: UNKNOWN
     Route: 065
     Dates: start: 20170101, end: 20171001
  215. MESALAMINE [Suspect]
     Active Substance: MESALAMINE
     Route: 065
     Dates: start: 2009
  216. MESALAMINE [Suspect]
     Active Substance: MESALAMINE
     Route: 065
     Dates: start: 20170101, end: 20170901
  217. MESALAMINE [Suspect]
     Active Substance: MESALAMINE
     Dosage: UNKNOWN
     Route: 065
     Dates: start: 20170101, end: 20170901
  218. MESALAMINE [Suspect]
     Active Substance: MESALAMINE
     Route: 048
     Dates: start: 201707
  219. MESALAMINE [Suspect]
     Active Substance: MESALAMINE
     Dosage: PROLONGED RELEASE TABLET
     Route: 048
     Dates: start: 20160101, end: 20161001
  220. MESALAMINE [Suspect]
     Active Substance: MESALAMINE
     Dosage: UNKNOWN
     Route: 048
     Dates: start: 20160101, end: 20160101
  221. MESALAMINE [Suspect]
     Active Substance: MESALAMINE
     Route: 065
     Dates: start: 20161001
  222. MESALAMINE [Suspect]
     Active Substance: MESALAMINE
     Dosage: UNKNOWN
     Route: 065
     Dates: start: 201709, end: 201709
  223. MESALAMINE [Suspect]
     Active Substance: MESALAMINE
     Dosage: UNKNOWN
     Route: 065
  224. MESALAMINE [Suspect]
     Active Substance: MESALAMINE
     Dosage: UNKNOWN
     Route: 048
  225. MESALAMINE [Suspect]
     Active Substance: MESALAMINE
     Route: 065
  226. MESALAMINE [Suspect]
     Active Substance: MESALAMINE
     Dosage: UNKNOWN
     Route: 065
  227. MESALAMINE [Suspect]
     Active Substance: MESALAMINE
     Route: 048
  228. MESALAMINE [Suspect]
     Active Substance: MESALAMINE
     Route: 048
  229. MESALAMINE [Suspect]
     Active Substance: MESALAMINE
     Route: 065
  230. MESALAMINE [Suspect]
     Active Substance: MESALAMINE
     Dosage: UNKNOWN
     Route: 065
  231. MESALAMINE [Suspect]
     Active Substance: MESALAMINE
     Dosage: UNKNOWN, VAGINAL CAPSULE
     Route: 065
  232. MESALAMINE [Suspect]
     Active Substance: MESALAMINE
     Route: 048
  233. MESALAMINE [Suspect]
     Active Substance: MESALAMINE
     Route: 048
  234. MESALAMINE [Suspect]
     Active Substance: MESALAMINE
     Dosage: UNKNOWN
     Route: 048
  235. MESALAMINE [Suspect]
     Active Substance: MESALAMINE
     Route: 065
  236. MESALAMINE [Suspect]
     Active Substance: MESALAMINE
     Dosage: UNKNOWN
     Route: 065
  237. MESALAMINE [Suspect]
     Active Substance: MESALAMINE
     Dosage: UNKNOWN, MINUS 243 DURATION
     Route: 065
  238. MESALAMINE [Suspect]
     Active Substance: MESALAMINE
     Route: 065
  239. MESALAMINE [Suspect]
     Active Substance: MESALAMINE
     Route: 048
  240. MESALAMINE [Suspect]
     Active Substance: MESALAMINE
     Route: 048
  241. MESALAMINE [Suspect]
     Active Substance: MESALAMINE
     Route: 048
  242. MESALAMINE [Suspect]
     Active Substance: MESALAMINE
     Route: 065
  243. MESALAMINE [Suspect]
     Active Substance: MESALAMINE
     Route: 065
  244. MESALAMINE [Suspect]
     Active Substance: MESALAMINE
     Dosage: UNKNOWN
     Route: 048
  245. MESALAMINE [Suspect]
     Active Substance: MESALAMINE
     Indication: Colitis ulcerative
     Dosage: UNKNOWN (DELAYED AND EXTENDED RELEASE)
     Route: 065
  246. MESALAMINE [Suspect]
     Active Substance: MESALAMINE
     Dosage: UNKNOWN (DELAYED AND EXTENDED RELEASE)
     Route: 065
  247. MESALAMINE [Suspect]
     Active Substance: MESALAMINE
     Dosage: UNKNOWN
     Route: 065
  248. MESALAMINE [Suspect]
     Active Substance: MESALAMINE
     Dosage: UNKNOWN
     Route: 048
     Dates: start: 20160101, end: 20161001
  249. MESALAMINE [Suspect]
     Active Substance: MESALAMINE
     Dosage: UNKNOWN
     Route: 048
     Dates: start: 20160101, end: 201610
  250. MESALAMINE [Suspect]
     Active Substance: MESALAMINE
     Dosage: UNKNOWN
     Route: 048
     Dates: start: 201601, end: 201610
  251. MESALAMINE [Suspect]
     Active Substance: MESALAMINE
     Dosage: UNKNOWN (DELAYED AND EXTENDED RELEASE)
     Route: 065
     Dates: start: 20170101, end: 20170901
  252. MESALAMINE [Suspect]
     Active Substance: MESALAMINE
     Dosage: UNKNOWN
     Route: 065
     Dates: start: 2013, end: 2014
  253. MESALAMINE [Suspect]
     Active Substance: MESALAMINE
     Dosage: UNKNOWN (DELAYED AND EXTENDED RELEASE)
     Route: 048
  254. MESALAMINE [Suspect]
     Active Substance: MESALAMINE
     Route: 048
  255. MESALAMINE [Suspect]
     Active Substance: MESALAMINE
     Dosage: UNKNOWN
     Route: 048
  256. MESALAMINE [Suspect]
     Active Substance: MESALAMINE
     Route: 065
  257. MESALAMINE [Suspect]
     Active Substance: MESALAMINE
     Dosage: UNKNOWN (DELAYED AND EXTENDED RELEASE)
     Route: 065
  258. MESALAMINE [Suspect]
     Active Substance: MESALAMINE
     Dosage: UNKNOWN, DELAYED AND EXTENDED RELEASE
     Route: 048
  259. MESALAMINE [Suspect]
     Active Substance: MESALAMINE
     Route: 065
  260. MESALAMINE [Suspect]
     Active Substance: MESALAMINE
     Dosage: UNKNOWN
     Route: 065
  261. AZATHIOPRINE [Suspect]
     Active Substance: AZATHIOPRINE
     Indication: Product used for unknown indication
     Route: 065
  262. HUMIRA [Suspect]
     Active Substance: ADALIMUMAB
     Indication: Colitis ulcerative
     Dosage: SOLUTION SUBCUTANEOUS
     Route: 058
  263. HUMIRA [Suspect]
     Active Substance: ADALIMUMAB
     Indication: Crohn^s disease
     Dosage: UNKNOWN, SOLUTION SUBCUTANEOUS
     Route: 058
  264. HUMIRA [Suspect]
     Active Substance: ADALIMUMAB
     Dosage: UNKNOWN, SOLUTION SUBCUTANEOUS
     Route: 065
  265. MESALAMINE [Suspect]
     Active Substance: MESALAMINE
     Indication: Colitis ulcerative
     Dosage: UNKNOWN
     Route: 065
  266. MESALAMINE [Suspect]
     Active Substance: MESALAMINE
     Dosage: UNKNOWN
     Route: 065
  267. MESALAMINE [Suspect]
     Active Substance: MESALAMINE
     Dosage: UNKNOWN
     Route: 065
  268. MESALAMINE [Suspect]
     Active Substance: MESALAMINE
     Dosage: UNKNOWN, 243 DURATION
     Route: 065
  269. MESALAMINE [Suspect]
     Active Substance: MESALAMINE
     Route: 065
  270. MESALAMINE [Suspect]
     Active Substance: MESALAMINE
     Route: 065
  271. MESALAMINE [Suspect]
     Active Substance: MESALAMINE
     Route: 065
  272. MESALAMINE [Suspect]
     Active Substance: MESALAMINE
     Dosage: UNKNOWN
     Route: 065
  273. MESALAMINE [Suspect]
     Active Substance: MESALAMINE
     Route: 065
  274. MESALAMINE [Suspect]
     Active Substance: MESALAMINE
     Route: 065
  275. MESALAMINE [Suspect]
     Active Substance: MESALAMINE
     Dosage: UNKNOWN
     Route: 048
  276. MESALAMINE [Suspect]
     Active Substance: MESALAMINE
     Route: 065
  277. MESALAMINE [Suspect]
     Active Substance: MESALAMINE
     Dosage: UNKNOWN
     Route: 065
  278. MESALAMINE [Suspect]
     Active Substance: MESALAMINE
     Dosage: UNKNOWN
     Route: 065
  279. BUDESONIDE [Suspect]
     Active Substance: BUDESONIDE
     Indication: Colitis ulcerative
     Dosage: UNKNOWN
     Route: 048
  280. BUDESONIDE [Suspect]
     Active Substance: BUDESONIDE
     Route: 048
  281. CORTISONE ACETATE [Suspect]
     Active Substance: CORTISONE ACETATE
     Indication: Product used for unknown indication
     Dosage: UNKNOWN
     Route: 065
  282. WARFARIN SODIUM [Suspect]
     Active Substance: WARFARIN SODIUM
     Indication: Deep vein thrombosis
     Dosage: UNKNOWN
     Route: 048
     Dates: end: 2009
  283. WARFARIN SODIUM [Suspect]
     Active Substance: WARFARIN SODIUM
     Indication: Colitis ulcerative
     Dosage: UNKNOWN
     Route: 048
     Dates: start: 2009
  284. WARFARIN SODIUM [Suspect]
     Active Substance: WARFARIN SODIUM
     Dosage: UNKNOWN
     Route: 065
     Dates: start: 2019
  285. WARFARIN SODIUM [Suspect]
     Active Substance: WARFARIN SODIUM
     Route: 048
     Dates: start: 201707
  286. WARFARIN SODIUM [Suspect]
     Active Substance: WARFARIN SODIUM
     Route: 048
     Dates: start: 2017
  287. WARFARIN SODIUM [Suspect]
     Active Substance: WARFARIN SODIUM
     Route: 048
  288. WARFARIN SODIUM [Suspect]
     Active Substance: WARFARIN SODIUM
     Route: 048
  289. INFLECTRA [Suspect]
     Active Substance: INFLIXIMAB-DYYB
     Indication: Colitis ulcerative
     Dosage: UNKNOWN AT WEEK ZERO
     Route: 042
  290. INFLECTRA [Suspect]
     Active Substance: INFLIXIMAB-DYYB
     Dosage: UNKNOWN AT WEEK TWO
     Route: 042
  291. INFLECTRA [Suspect]
     Active Substance: INFLIXIMAB-DYYB
     Dosage: UNKNOWN AT WEEK SIX
     Route: 042
  292. INFLECTRA [Suspect]
     Active Substance: INFLIXIMAB-DYYB
     Dosage: UNKNOWN EVERY EIGHT WEEKS
     Route: 042
  293. MESALAMINE [Suspect]
     Active Substance: MESALAMINE
     Indication: Colitis ulcerative
     Dosage: UNKNOWN
     Route: 065
     Dates: start: 20160101, end: 20161001
  294. MESALAMINE [Suspect]
     Active Substance: MESALAMINE
     Dosage: UNKNOWN
     Route: 065
  295. HYDROCORTISONE SODIUM SUCCINATE [Suspect]
     Active Substance: HYDROCORTISONE SODIUM SUCCINATE
     Indication: Colitis ulcerative
     Route: 065
  296. SULFASALAZINE [Suspect]
     Active Substance: SULFASALAZINE
     Indication: Colitis ulcerative
     Dosage: UNKNOWN
     Route: 065
  297. SULFASALAZINE [Suspect]
     Active Substance: SULFASALAZINE
     Indication: Arthritis
     Route: 048
  298. HUMIRA [Concomitant]
     Active Substance: ADALIMUMAB
     Indication: Crohn^s disease
     Dosage: SOLUTION SUBCUTANEOUS
     Route: 065
  299. HUMIRA [Concomitant]
     Active Substance: ADALIMUMAB
     Indication: Deep vein thrombosis
     Route: 048
     Dates: start: 201707
  300. HUMIRA [Concomitant]
     Active Substance: ADALIMUMAB
     Dosage: UNKNOWN
     Route: 065
  301. HUMIRA [Concomitant]
     Active Substance: ADALIMUMAB
     Dosage: SOLUTION SUBCUTANEOUS
     Route: 048
  302. INFLIXIMAB [Concomitant]
     Active Substance: INFLIXIMAB
     Indication: Crohn^s disease
     Dosage: UNKNOWN
     Route: 065
  303. SULFASALAZINE [Concomitant]
     Active Substance: SULFASALAZINE
     Indication: Colitis ulcerative
     Dosage: UNKNOWN
     Route: 065
  304. SULFASALAZINE [Concomitant]
     Active Substance: SULFASALAZINE
     Dosage: UNKNOWN
     Route: 065
  305. SULFASALAZINE [Concomitant]
     Active Substance: SULFASALAZINE
     Dosage: UNKNOWN
     Route: 065
  306. SULFASALAZINE [Concomitant]
     Active Substance: SULFASALAZINE
     Dosage: UNKNOWN
     Route: 065
     Dates: start: 20160101, end: 20160101
  307. SULFASALAZINE [Concomitant]
     Active Substance: SULFASALAZINE
     Dosage: UNKNOWN
     Route: 065
     Dates: start: 20090101, end: 20160101
  308. SULFASALAZINE [Concomitant]
     Active Substance: SULFASALAZINE
     Dosage: UNKNOWN
     Route: 065
     Dates: start: 201709, end: 201709
  309. SULFASALAZINE [Concomitant]
     Active Substance: SULFASALAZINE
     Dosage: UNKNOWN
     Route: 065
     Dates: start: 2009, end: 2016
  310. SULFASALAZINE [Concomitant]
     Active Substance: SULFASALAZINE
     Dosage: UNKNOWN
     Route: 065
     Dates: start: 20091001, end: 20161001
  311. SULFASALAZINE [Concomitant]
     Active Substance: SULFASALAZINE
     Dosage: UNKNOWN
     Route: 065
  312. SULFASALAZINE [Concomitant]
     Active Substance: SULFASALAZINE
     Dosage: UNKNOWN
     Route: 065
  313. MESALAMINE [Concomitant]
     Active Substance: MESALAMINE
     Indication: Colitis ulcerative
     Dosage: UNKNOWN
     Route: 065
  314. MESALAMINE [Concomitant]
     Active Substance: MESALAMINE
     Indication: Colitis ulcerative
     Dosage: UNKNOWN (DELAYED AND EXTENDED RELEASE)
     Route: 065
  315. MESALAMINE [Concomitant]
     Active Substance: MESALAMINE
     Dosage: UNKNOWN (DELAYED AND EXTENDED RELEASE)
     Route: 065
  316. MESALAMINE [Concomitant]
     Active Substance: MESALAMINE
     Dosage: UNKNOWN
     Route: 065
  317. MESALAMINE [Concomitant]
     Active Substance: MESALAMINE
     Dosage: UNKNOWN (DELAYED AND EXTENDED RELEASE)
     Route: 065
  318. MESALAMINE [Concomitant]
     Active Substance: MESALAMINE
     Dosage: UNKNOWN (DELAYED AND EXTENDED RELEASE)
     Route: 065
  319. METHOTREXATE [Concomitant]
     Active Substance: METHOTREXATE
     Indication: Colitis ulcerative
     Dosage: UNKNOWN
     Route: 065
     Dates: start: 20090101, end: 20160101
  320. METHOTREXATE [Concomitant]
     Active Substance: METHOTREXATE
     Dosage: UNKNOWN
     Route: 065
     Dates: start: 201709, end: 201709
  321. METHOTREXATE [Concomitant]
     Active Substance: METHOTREXATE
     Dosage: UNKNOWN
     Route: 065
  322. METHOTREXATE [Concomitant]
     Active Substance: METHOTREXATE
     Dosage: UNKNOWN
     Route: 048
  323. METHOTREXATE [Concomitant]
     Active Substance: METHOTREXATE
     Dosage: UNKNOWN
     Route: 065
  324. MESALAMINE [Concomitant]
     Active Substance: MESALAMINE
     Indication: Colitis ulcerative
     Dosage: UNKNOWN
     Route: 065
  325. MESALAMINE [Concomitant]
     Active Substance: MESALAMINE
     Dosage: UNKNOWN
     Route: 065
  326. BUDESONIDE [Concomitant]
     Active Substance: BUDESONIDE
     Indication: Colitis ulcerative
     Dosage: UNKNOWN
     Route: 048
  327. BUDESONIDE [Concomitant]
     Active Substance: BUDESONIDE
     Dosage: UNKNOWN
     Route: 065
  328. ASACOL [Concomitant]
     Active Substance: MESALAMINE
     Indication: Product used for unknown indication
     Dosage: TABLET (ENTERIC COATED)
     Route: 065
  329. CORTIFOAM [Concomitant]
     Active Substance: HYDROCORTISONE ACETATE
     Indication: Colitis ulcerative
     Dosage: UNKNOWN (AEROSOL, FOAM)
     Route: 065
  330. CORTIMENT [Concomitant]
     Indication: Colitis ulcerative
     Dosage: UNKNOWN
     Route: 048
  331. CORTIMENT [Concomitant]
     Dosage: UNKNOWN
     Route: 048
  332. PREDNISONE [Concomitant]
     Active Substance: PREDNISONE
     Indication: Colitis ulcerative
     Route: 065
  333. XELJANZ [Concomitant]
     Active Substance: TOFACITINIB CITRATE
     Indication: Colitis ulcerative
     Route: 048

REACTIONS (20)
  - Bronchiectasis [Unknown]
  - Condition aggravated [Not Recovered/Not Resolved]
  - Frequent bowel movements [Unknown]
  - Impaired quality of life [Unknown]
  - Weight decreased [Unknown]
  - Colitis ulcerative [Unknown]
  - Deep vein thrombosis [Unknown]
  - Loss of personal independence in daily activities [Unknown]
  - Stress [Not Recovered/Not Resolved]
  - Steroid dependence [Not Recovered/Not Resolved]
  - Haematochezia [Not Recovered/Not Resolved]
  - Impaired work ability [Not Recovered/Not Resolved]
  - Rectal haemorrhage [Not Recovered/Not Resolved]
  - Drug ineffective [Unknown]
  - Product use in unapproved indication [Not Recovered/Not Resolved]
  - Intentional product use issue [Not Recovered/Not Resolved]
  - Inappropriate schedule of product administration [Not Recovered/Not Resolved]
  - Off label use [Not Recovered/Not Resolved]
  - Medication error [Not Recovered/Not Resolved]
  - Product use issue [Unknown]
